FAERS Safety Report 9543326 (Version 2)
Quarter: 2013Q4

REPORT INFORMATION
  Report Type: Spontaneous
  Country: US (occurrence: US)
  Receive Date: 20130923
  Receipt Date: 20131023
  Transmission Date: 20140711
  Serious: Yes (Other)
  Sender: FDA-Public Use
  Company Number: US-PFIZER INC-2013270561

PATIENT
  Age: 55 Year
  Sex: Female
  Weight: 60.77 kg

DRUGS (2)
  1. LEVOXYL [Suspect]
     Indication: HYPOTHYROIDISM
     Dosage: 0.088 MG, 1X/DAY
     Dates: start: 1998
  2. LEVOXYL [Suspect]
     Dosage: 88 UG, UNK
     Route: 048
     Dates: end: 201305

REACTIONS (8)
  - Meningitis viral [Not Recovered/Not Resolved]
  - Migraine [Not Recovered/Not Resolved]
  - Neck pain [Not Recovered/Not Resolved]
  - Musculoskeletal pain [Not Recovered/Not Resolved]
  - Pain in extremity [Not Recovered/Not Resolved]
  - Neuropathy peripheral [Not Recovered/Not Resolved]
  - Photosensitivity reaction [Not Recovered/Not Resolved]
  - Spondylitis [Not Recovered/Not Resolved]
